FAERS Safety Report 7250962-2 (Version None)
Quarter: 2011Q1

REPORT INFORMATION
  Report Type: 
  Country: None (occurrence: None)
  Receive Date: 20110128
  Receipt Date: 20110124
  Transmission Date: 20110831
  Serious: Yes (Hospitalization, Congenital Anomaly)
  Sender: FDA-Public Use
  Company Number: A0909861A

PATIENT
  Sex: Female

DRUGS (1)
  1. PAXIL [Suspect]
     Indication: PRODUCT USED FOR UNKNOWN INDICATION
     Route: 064

REACTIONS (11)
  - COARCTATION OF THE AORTA [None]
  - ATRIAL SEPTAL DEFECT [None]
  - CYTOGENETIC ABNORMALITY [None]
  - CLEFT LIP AND PALATE [None]
  - BRONCHOPULMONARY DYSPLASIA [None]
  - PYLORIC STENOSIS [None]
  - VENTRICULAR SEPTAL DEFECT [None]
  - PATENT DUCTUS ARTERIOSUS [None]
  - DRUG EXPOSURE DURING PREGNANCY [None]
  - CEREBRAL VENTRICLE DILATATION [None]
  - OESOPHAGEAL ATRESIA [None]
